FAERS Safety Report 5255034-4 (Version None)
Quarter: 2007Q1

REPORT INFORMATION
  Report Type: 
  Country: None (occurrence: None)
  Receive Date: 20070305
  Receipt Date: 20070224
  Transmission Date: 20070707
  Serious: Yes (Other)
  Sender: FDA-Public Use
  Company Number: US-AMGEN-US212669

PATIENT
  Sex: Female

DRUGS (1)
  1. ENBREL [Suspect]
     Indication: ANKYLOSING SPONDYLITIS
     Route: 058
     Dates: start: 20040901

REACTIONS (9)
  - ARTHRALGIA [None]
  - COUGH [None]
  - CRYING [None]
  - FATIGUE [None]
  - FLUSHING [None]
  - OCULAR HYPERAEMIA [None]
  - OCULAR ICTERUS [None]
  - OEDEMA PERIPHERAL [None]
  - PULMONARY OEDEMA [None]
